FAERS Safety Report 4754327-4 (Version None)
Quarter: 2005Q3

REPORT INFORMATION
  Report Type: 
  Country: None (occurrence: None)
  Receive Date: 20050826
  Receipt Date: 20050321
  Transmission Date: 20060218
  Serious: Yes (Other)
  Sender: FDA-Public Use
  Company Number: USA-2004-0014299

PATIENT
  Age: 60 Year
  Sex: Male

DRUGS (4)
  1. OXYCONTIN [Suspect]
  2. LORTAB [Suspect]
  3. ALPRAZOLAM [Suspect]
  4. METHADONE HCL [Suspect]

REACTIONS (1)
  - DRUG ABUSER [None]
